FAERS Safety Report 9216864 (Version 5)
Quarter: 2013Q2

REPORT INFORMATION
  Report Type: Spontaneous
  Country: US (occurrence: US)
  Receive Date: 20130408
  Receipt Date: 20130516
  Transmission Date: 20140414
  Serious: No
  Sender: FDA-Public Use
  Company Number: US-PFIZER INC-2013107782

PATIENT
  Sex: Female

DRUGS (1)
  1. LYRICA [Suspect]
     Dosage: 25 MG, UNK

REACTIONS (5)
  - Neuropathy peripheral [Unknown]
  - Pain in extremity [Unknown]
  - Hypoaesthesia [Unknown]
  - Limb discomfort [Unknown]
  - Drug ineffective [Unknown]
